FAERS Safety Report 15676402 (Version 1)
Quarter: 2018Q4

REPORT INFORMATION
  Report Type: Spontaneous
  Country: US (occurrence: US)
  Receive Date: 20181130
  Receipt Date: 20181130
  Transmission Date: 20190205
  Serious: Yes (Other)
  Sender: FDA-Public Use
  Company Number: US-SA-2018SA176343

PATIENT

DRUGS (1)
  1. SELSUN BLUE DEEP CLEANSING MICRO-BEADS [Suspect]
     Active Substance: SALICYLIC ACID

REACTIONS (1)
  - Seizure [Unknown]
